FAERS Safety Report 6030712-8 (Version None)
Quarter: 2009Q1

REPORT INFORMATION
  Report Type: 
  Country: None (occurrence: None)
  Receive Date: 20090107
  Receipt Date: 20081219
  Transmission Date: 20090719
  Serious: Yes (Other)
  Sender: FDA-Public Use
  Company Number: DK-B.I. PHARMACEUTICALS,INC./RIDGEFIELD-2008-DE-07834GD

PATIENT
  Sex: Female

DRUGS (5)
  1. SERTRALINE [Suspect]
  2. RANITIDINE [Suspect]
  3. CODEINE SUL TAB [Suspect]
  4. TAMOXIFEN CITRATE [Suspect]
     Indication: BREAST CANCER RECURRENT
  5. TAMOXIFEN CITRATE [Suspect]
     Indication: PROPHYLAXIS

REACTIONS (1)
  - BREAST CANCER RECURRENT [None]
